FAERS Safety Report 6705678-5 (Version None)
Quarter: 2010Q2

REPORT INFORMATION
  Report Type: 
  Country: None (occurrence: None)
  Receive Date: 20100503
  Receipt Date: 20100422
  Transmission Date: 20101027
  Serious: Yes (Other)
  Sender: FDA-Public Use
  Company Number: FR-JNJFOC-20100406365

PATIENT
  Age: 55 Year
  Sex: Female

DRUGS (3)
  1. REMINYL LP [Suspect]
     Indication: DRUG USE FOR UNKNOWN INDICATION
     Route: 048
  2. REQUIP [Suspect]
     Indication: PARKINSON'S DISEASE
     Route: 048
  3. MODOPAR [Concomitant]
     Indication: PARKINSON'S DISEASE

REACTIONS (3)
  - DRUG DISPENSING ERROR [None]
  - HEART RATE INCREASED [None]
  - TREMOR [None]
